FAERS Safety Report 10175773 (Version 1)
Quarter: 2014Q2

REPORT INFORMATION
  Report Type: Spontaneous
  Country: US (occurrence: US)
  Receive Date: 20140516
  Receipt Date: 20140516
  Transmission Date: 20141212
  Serious: No
  Sender: FDA-Public Use
  Company Number: US-009507513-1405USA005286

PATIENT
  Sex: Male

DRUGS (1)
  1. NASONEX [Suspect]
     Indication: SINUS CONGESTION
     Dosage: DOSE/FREQUENCY:50 MCG/ 2 SPRAYS IN EACH NOSTRIL ONCE DAILY
     Route: 045

REACTIONS (2)
  - Eye pain [Recovering/Resolving]
  - Headache [Recovering/Resolving]
